FAERS Safety Report 25706281 (Version 1)
Quarter: 2025Q3

REPORT INFORMATION
  Report Type: Spontaneous
  Country: US (occurrence: None)
  Receive Date: 20250819
  Receipt Date: 20250819
  Transmission Date: 20251020
  Serious: Yes (Hospitalization)
  Sender: FDA-CTU
  Company Number: None

PATIENT
  Sex: Female

DRUGS (4)
  1. OPSUMIT [Suspect]
     Active Substance: MACITENTAN
     Indication: Pulmonary arterial hypertension
     Dosage: 10 MG DAIL ORAL ?
     Route: 048
     Dates: start: 20171226
  2. OPSUMIT [Concomitant]
     Active Substance: MACITENTAN
  3. WINREVAIR [Concomitant]
     Active Substance: SOTATERCEPT-CSRK
  4. SODIUM CHLOR SDV (50ML/FTV) [Concomitant]

REACTIONS (1)
  - Infection [None]
